FAERS Safety Report 5784325-3 (Version None)
Quarter: 2008Q2

REPORT INFORMATION
  Report Type: 
  Country: None (occurrence: None)
  Receive Date: 20080624
  Receipt Date: 20070413
  Transmission Date: 20081010
  Serious: No
  Sender: FDA-Public Use
  Company Number: US-ASTRAZENECA-2007UW07309

PATIENT
  Age: 66 Year
  Sex: Female
  Weight: 70.8 kg

DRUGS (4)
  1. PULMICORT-100 [Suspect]
     Indication: NASOPHARYNGITIS
     Route: 055
  2. PULMICORT-100 [Suspect]
     Indication: ASTHMA
     Route: 055
  3. SINGULAIR [Concomitant]
  4. ALBUTEROL [Concomitant]

REACTIONS (4)
  - ERYTHEMA [None]
  - FLUSHING [None]
  - ILL-DEFINED DISORDER [None]
  - SKIN WARM [None]
